FAERS Safety Report 21070241 (Version 2)
Quarter: 2022Q3

REPORT INFORMATION
  Report Type: Report from Study
  Country: NL (occurrence: NL)
  Receive Date: 20220712
  Receipt Date: 20220712
  Transmission Date: 20221026
  Serious: Yes (Other)
  Sender: FDA-Public Use
  Company Number: NL-VER-202100122

PATIENT
  Age: 55 Year
  Sex: Male

DRUGS (3)
  1. TRIPTORELIN PAMOATE [Suspect]
     Active Substance: TRIPTORELIN PAMOATE
     Indication: Prostate cancer
     Route: 030
     Dates: start: 20210202
  2. TAMSULOSIN [Concomitant]
     Active Substance: TAMSULOSIN
     Route: 065
  3. CALCICHEW/D3 [Concomitant]
     Dosage: 1000 MG/800 IE
     Route: 065

REACTIONS (2)
  - Metastases to bone [Unknown]
  - Prostatic specific antigen increased [Not Recovered/Not Resolved]
